FAERS Safety Report 8800304 (Version 2)
Quarter: 2014Q3

REPORT INFORMATION
  Report Type: Report from Study
  Country: US (occurrence: US)
  Receive Date: 20120921
  Receipt Date: 20140825
  Transmission Date: 20150326
  Serious: Yes (Death, Other)
  Sender: FDA-Public Use
  Company Number: US-ROCHE-1097620

PATIENT
  Sex: Male
  Weight: 91 kg

DRUGS (3)
  1. INTRON A [Concomitant]
     Active Substance: INTERFERON ALFA-2B
  2. AVASTIN [Suspect]
     Active Substance: BEVACIZUMAB
     Indication: METASTATIC RENAL CELL CARCINOMA
  3. AVASTIN [Suspect]
     Active Substance: BEVACIZUMAB
     Indication: MALIGNANT URINARY TRACT NEOPLASM
     Dosage: ESCALATING DOSAGE
     Route: 042

REACTIONS (2)
  - Metastases to bone [Unknown]
  - Death [Fatal]
